FAERS Safety Report 24150194 (Version 2)
Quarter: 2024Q3

REPORT INFORMATION
  Report Type: Spontaneous
  Country: JP (occurrence: JP)
  Receive Date: 20240730
  Receipt Date: 20240812
  Transmission Date: 20241017
  Serious: Yes (Hospitalization, Other)
  Sender: JOHNSON AND JOHNSON
  Company Number: JP-BAYER-2024A109809

PATIENT
  Age: 84 Year
  Sex: Female

DRUGS (5)
  1. XARELTO [Suspect]
     Active Substance: RIVAROXABAN
     Indication: Atrial fibrillation
     Dosage: UNK
     Route: 048
  2. XARELTO [Suspect]
     Active Substance: RIVAROXABAN
     Indication: Atrial fibrillation
     Dosage: UNK
     Route: 048
  3. CALONAL [Concomitant]
     Active Substance: ACETAMINOPHEN
  4. TORSEMIDE [Concomitant]
     Active Substance: TORSEMIDE
  5. CILOSTAZOL [Concomitant]
     Active Substance: CILOSTAZOL

REACTIONS (5)
  - Mitral valve incompetence [Recovering/Resolving]
  - Hospitalisation [Unknown]
  - Atrial appendage resection [Recovering/Resolving]
  - Cardiac operation [Recovering/Resolving]
  - Intentional product use issue [Unknown]

NARRATIVE: CASE EVENT DATE: 20190101
